FAERS Safety Report 9605054 (Version 4)
Quarter: 2013Q4

REPORT INFORMATION
  Report Type: Spontaneous
  Country: JP (occurrence: JP)
  Receive Date: 20131008
  Receipt Date: 20131108
  Transmission Date: 20140711
  Serious: Yes (Life-Threatening, Hospitalization, Other)
  Sender: FDA-Public Use
  Company Number: JP-SA-2013SA100262

PATIENT
  Age: 64 Year
  Sex: Male
  Weight: 73 kg

DRUGS (11)
  1. MYSLEE [Suspect]
     Indication: INSOMNIA
     Route: 048
  2. MYSLEE [Suspect]
     Indication: INSOMNIA
     Route: 048
  3. MYSLEE [Suspect]
     Indication: INSOMNIA
     Route: 048
     Dates: start: 20130918, end: 20130918
  4. MYSLEE [Suspect]
     Indication: INSOMNIA
     Route: 048
     Dates: start: 20130918, end: 20130918
  5. LASIX [Concomitant]
     Indication: RENAL FAILURE CHRONIC
  6. ZYLORIC [Concomitant]
     Indication: HYPERURICAEMIA
  7. GASTER [Concomitant]
     Indication: PROPHYLAXIS AGAINST GASTROINTESTINAL ULCER
     Dosage: ORODISPERSIBLE CR TABLET
  8. METHYLCOBAL [Concomitant]
     Indication: HYPOAESTHESIA
  9. KREMEZIN [Concomitant]
     Indication: RENAL FAILURE CHRONIC
     Dosage: FINE GRANULE
  10. NOVORAPID [Concomitant]
     Indication: TYPE 2 DIABETES MELLITUS
  11. NOVOLIN N [Concomitant]
     Indication: TYPE 2 DIABETES MELLITUS

REACTIONS (5)
  - Disinhibition [Recovered/Resolved]
  - Delirium [Recovering/Resolving]
  - Delirium [Recovering/Resolving]
  - Dizziness [Recovering/Resolving]
  - Overdose [Unknown]
